FAERS Safety Report 6296288-5 (Version None)
Quarter: 2009Q3

REPORT INFORMATION
  Report Type: 
  Country: None (occurrence: None)
  Receive Date: 20090804
  Receipt Date: 20090720
  Transmission Date: 20100115
  Serious: Yes (Hospitalization)
  Sender: FDA-Public Use
  Company Number: FR-NAPPMUNDI-GBR-2009-0005407

PATIENT
  Sex: Female

DRUGS (11)
  1. OXYNORM CAPSULES 5 MG [Suspect]
     Indication: CANCER PAIN
     Dosage: 5 MG, QID
     Route: 048
  2. OXYCONTIN [Suspect]
     Indication: CANCER PAIN
     Dosage: 15 MG, BID
     Route: 048
  3. TERCIAN                            /00759301/ [Suspect]
     Indication: DRUG USE FOR UNKNOWN INDICATION
     Dosage: 40 MG/ML, NOCTE
     Route: 048
  4. DIPIPERON [Suspect]
     Indication: DRUG USE FOR UNKNOWN INDICATION
     Dosage: 40 MG/ML, DAILY
     Route: 048
  5. NOLVADEX                           /00388701/ [Suspect]
     Indication: BREAST CANCER RECURRENT
     Dosage: UNK
     Route: 048
     Dates: start: 20080501
  6. ZAMUDOL [Suspect]
     Indication: DRUG USE FOR UNKNOWN INDICATION
     Dosage: 1 CAPSL, BID
     Route: 048
  7. CLASTOBAN [Suspect]
     Indication: DRUG USE FOR UNKNOWN INDICATION
     Dosage: 800 MG, BID
     Route: 048
  8. MODECATE                           /00000604/ [Suspect]
     Indication: DRUG USE FOR UNKNOWN INDICATION
     Dosage: 1 INJ, MONTHLY
     Route: 030
  9. ATHYMIL [Suspect]
     Indication: DRUG USE FOR UNKNOWN INDICATION
     Dosage: UNK
     Route: 048
  10. LEPTICUR [Suspect]
     Indication: DRUG USE FOR UNKNOWN INDICATION
     Dosage: UNK
     Route: 048
  11. POLYETHYLENE GLYCOL [Concomitant]

REACTIONS (1)
  - THROMBOPHLEBITIS [None]
